FAERS Safety Report 6007965-5 (Version None)
Quarter: 2008Q4

REPORT INFORMATION
  Report Type: 
  Country: None (occurrence: None)
  Receive Date: 20081217
  Receipt Date: 20080619
  Transmission Date: 20090506
  Serious: No
  Sender: FDA-Public Use
  Company Number: US-ASTRAZENECA-2008UW12368

PATIENT
  Sex: Female
  Weight: 76.2 kg

DRUGS (6)
  1. CRESTOR [Suspect]
     Indication: BLOOD CHOLESTEROL INCREASED
     Route: 048
  2. MULTI-VITAMIN [Concomitant]
  3. ASPIRIN [Concomitant]
  4. GLUCOSAMINE [Concomitant]
  5. CHONDROITIN [Concomitant]
  6. CALCIUM WITH VITAMIN D [Concomitant]

REACTIONS (2)
  - DIARRHOEA [None]
  - RASH [None]
